FAERS Safety Report 6376301-7 (Version None)
Quarter: 2009Q3

REPORT INFORMATION
  Report Type: 
  Country: None (occurrence: None)
  Receive Date: 20090923
  Receipt Date: 20090923
  Transmission Date: 20100115
  Serious: Yes (Other)
  Sender: FDA-Public Use
  Company Number: None

PATIENT
  Age: 55 Year
  Sex: Male
  Weight: 85.2762 kg

DRUGS (6)
  1. ANDROGEL [Suspect]
     Indication: HYPOGONADISM
     Dosage: 5 G 1X D TRANSDERMAL  (1 USE ONLY)
     Route: 062
     Dates: start: 20090808
  2. ANDRODERM [Suspect]
     Indication: HYPOGONADISM
     Dosage: 5MG 1XD TRANSDERMAL
     Route: 062
     Dates: start: 20090721, end: 20090801
  3. DIOVAN [Concomitant]
  4. RED YEAST RICE CAPS [Concomitant]
  5. OMEGA-3 CAPS [Concomitant]
  6. M.V.I. [Concomitant]

REACTIONS (5)
  - ANGIOEDEMA [None]
  - APPLICATION SITE PRURITUS [None]
  - APPLICATION SITE SWELLING [None]
  - DERMATITIS CONTACT [None]
  - DYSPNOEA [None]
